FAERS Safety Report 16576631 (Version 1)
Quarter: 2019Q3

REPORT INFORMATION
  Report Type: Spontaneous
  Country: US (occurrence: US)
  Receive Date: 20190715
  Receipt Date: 20190715
  Transmission Date: 20191004
  Serious: No
  Sender: FDA-Public Use
  Company Number: None

PATIENT
  Age: 70 Year
  Sex: Male

DRUGS (1)
  1. CAPECITABINE. [Suspect]
     Active Substance: CAPECITABINE
     Dates: start: 20190522, end: 20190715

REACTIONS (3)
  - Diarrhoea [None]
  - Visual impairment [None]
  - Rash pruritic [None]

NARRATIVE: CASE EVENT DATE: 20190715
